FAERS Safety Report 6339355-X (Version None)
Quarter: 2009Q3

REPORT INFORMATION
  Report Type: 
  Country: None (occurrence: None)
  Receive Date: 20090903
  Receipt Date: 20090825
  Transmission Date: 20100115
  Serious: Yes (Other)
  Sender: FDA-Public Use
  Company Number: US-ELI_LILLY_AND_COMPANY-US200707005449

PATIENT
  Sex: Female
  Weight: 106.58 kg

DRUGS (14)
  1. BYETTA [Suspect]
     Indication: TYPE 2 DIABETES MELLITUS
     Dosage: 5 UG, 2/D
     Dates: start: 20061009, end: 20061126
  2. BYETTA [Suspect]
     Dosage: 10 UG, 2/D
     Dates: start: 20061127
  3. METHADONE HYDROCHLORIDE [Concomitant]
     Dosage: UNK, 3/D
  4. PERCOCET [Concomitant]
     Dosage: UNK, AS NEEDED
  5. LIPITOR [Concomitant]
     Indication: BLOOD CHOLESTEROL INCREASED
     Dosage: 20 MG, UNK
     Route: 048
     Dates: start: 20061001
  6. LEVOXYL [Concomitant]
     Indication: THYROID DISORDER
     Dosage: UNK, UNK
     Route: 048
     Dates: start: 20070901
  7. CYTOMEL [Concomitant]
     Indication: THYROID DISORDER
     Dosage: 5 MG, UNK
  8. DIOVAN [Concomitant]
  9. TRICOR [Concomitant]
  10. SYNTHROID [Concomitant]
     Dosage: 0.75 MG, DAILY (1/D)
  11. RESTORIL [Concomitant]
     Dosage: 30 MG, AS NEEDED
  12. ASPIRIN [Concomitant]
     Dosage: UNK, DAILY (1/D)
  13. MULTI-VITAMIN [Concomitant]
  14. CALCIUM [Concomitant]

REACTIONS (2)
  - HYPOGLYCAEMIA [None]
  - THYROID CANCER [None]
